FAERS Safety Report 5096389-3 (Version None)
Quarter: 2006Q3

REPORT INFORMATION
  Report Type: 
  Country: None (occurrence: None)
  Receive Date: 20060831
  Receipt Date: 20060822
  Transmission Date: 20061208
  Serious: Yes (Hospitalization)
  Sender: FDA-Public Use
  Company Number: 2006-04604

PATIENT
  Age: 48 Year
  Sex: Female

DRUGS (2)
  1. TRELSTAR DEPOT [Suspect]
     Indication: BREAST CANCER
     Dates: start: 20060406, end: 20060406
  2. EXEMESTANE [Suspect]
     Indication: BREAST CANCER
     Dates: start: 20060406

REACTIONS (3)
  - MENORRHAGIA [None]
  - PELVIC ABSCESS [None]
  - POSTOPERATIVE ABSCESS [None]
